FAERS Safety Report 9455331 (Version 5)
Quarter: 2014Q2

REPORT INFORMATION
  Report Type: Spontaneous
  Country: JP (occurrence: JP)
  Receive Date: 20130813
  Receipt Date: 20140505
  Transmission Date: 20141212
  Serious: Yes (Death, Other)
  Sender: FDA-Public Use
  Company Number: JP-JNJFOC-20130805060

PATIENT
  Age: 66 Year
  Sex: Female

DRUGS (8)
  1. TRAMCET [Suspect]
     Indication: PAIN
     Route: 048
     Dates: start: 20130513, end: 20130611
  2. TRAMCET [Suspect]
     Indication: PAIN
     Dosage: 2 PER 1 DAY
     Route: 048
     Dates: start: 20130501, end: 20130503
  3. TRAMCET [Suspect]
     Indication: PAIN
     Route: 048
     Dates: start: 20130612, end: 20130723
  4. TRAMCET [Suspect]
     Indication: PAIN
     Route: 048
     Dates: start: 20130724, end: 20130802
  5. TRAMCET [Suspect]
     Indication: PAIN
     Route: 048
     Dates: start: 20130504, end: 20130512
  6. NAUZELIN [Suspect]
     Indication: NAUSEA
     Route: 048
     Dates: start: 20130529, end: 20130802
  7. NAUZELIN [Suspect]
     Indication: NAUSEA
     Route: 048
     Dates: start: 20130501, end: 20130512
  8. MAGNESIUM OXIDE [Suspect]
     Indication: CONSTIPATION
     Route: 048
     Dates: start: 20130724

REACTIONS (10)
  - Gastritis haemorrhagic [Fatal]
  - Hepatic failure [Fatal]
  - Gastric ulcer [Fatal]
  - Blood creatinine increased [Not Recovered/Not Resolved]
  - Platelet count decreased [Not Recovered/Not Resolved]
  - Treatment noncompliance [Unknown]
  - Nausea [Not Recovered/Not Resolved]
  - Decreased appetite [Not Recovered/Not Resolved]
  - Weight decreased [Not Recovered/Not Resolved]
  - Constipation [Unknown]
